FAERS Safety Report 14683789 (Version 1)
Quarter: 2018Q1

REPORT INFORMATION
  Report Type: Spontaneous
  Country: FR (occurrence: FR)
  Receive Date: 20180327
  Receipt Date: 20180327
  Transmission Date: 20180509
  Serious: Yes (Other)
  Sender: FDA-Public Use
  Company Number: FR-UCBSA-2018010249

PATIENT

DRUGS (1)
  1. VIMPAT [Suspect]
     Active Substance: LACOSAMIDE
     Indication: EPILEPSY
     Dosage: 250 MG PER DAY (100 MG + 50 MG PILLS)
     Route: 064
     Dates: start: 201504, end: 201602

REACTIONS (2)
  - Foetal exposure during pregnancy [Unknown]
  - Growth retardation [Unknown]

NARRATIVE: CASE EVENT DATE: 201504
